FAERS Safety Report 12692979 (Version 1)
Quarter: 2016Q3

REPORT INFORMATION
  Report Type: Spontaneous
  Country: DK (occurrence: DK)
  Receive Date: 20160829
  Receipt Date: 20160829
  Transmission Date: 20161109
  Serious: Yes (Hospitalization)
  Sender: FDA-Public Use
  Company Number: DK-ROCHE-1821158

PATIENT
  Age: 65 Year
  Sex: Female
  Weight: 49.5 kg

DRUGS (4)
  1. DOLOL (DENMARK) [Concomitant]
     Indication: PAIN
     Route: 065
  2. ALENDRONAT [Concomitant]
     Active Substance: ALENDRONATE SODIUM
     Indication: OSTEOPOROSIS
     Route: 065
  3. PREDNISOLON [Concomitant]
     Active Substance: PREDNISOLONE
     Indication: SCLERODERMA
     Route: 065
  4. MABTHERA [Suspect]
     Active Substance: RITUXIMAB
     Indication: SCLERODERMA
     Route: 042
     Dates: start: 20160715

REACTIONS (2)
  - Cerebral thrombosis [Recovered/Resolved with Sequelae]
  - Sensory disturbance [Unknown]

NARRATIVE: CASE EVENT DATE: 20160726
